FAERS Safety Report 11047032 (Version 1)
Quarter: 2015Q2

REPORT INFORMATION
  Report Type: Spontaneous
  Country: SE (occurrence: None)
  Receive Date: 20150416
  Receipt Date: 20150416
  Transmission Date: 20150821
  Serious: Yes (Hospitalization, Other)
  Sender: FDA-Public Use
  Company Number: 20150212

PATIENT
  Age: 19 Year
  Sex: Female

DRUGS (1)
  1. FERINJECT [Suspect]
     Active Substance: FERRIC CARBOXYMALTOSE
     Indication: PRODUCT USED FOR UNKNOWN INDICATION
     Dosage: 1000 MG (1 IN 1 TOTAL)
     Route: 041
     Dates: start: 20141215, end: 20141215

REACTIONS (5)
  - Nausea [None]
  - Abnormal sensation in eye [None]
  - Blood pressure decreased [None]
  - Malaise [None]
  - Chest discomfort [None]

NARRATIVE: CASE EVENT DATE: 20141215
